FAERS Safety Report 8327748-0 (Version None)
Quarter: 2012Q2

REPORT INFORMATION
  Report Type: 
  Country: None (occurrence: None)
  Receive Date: 20120502
  Receipt Date: 20120430
  Transmission Date: 20120825
  Serious: No
  Sender: FDA-Public Use
  Company Number: US-PFIZER INC-2012074583

PATIENT

DRUGS (2)
  1. NEURONTIN [Suspect]
     Dosage: UNK
  2. HALOPERIDOL [Suspect]
     Dosage: UNK

REACTIONS (2)
  - NERVOUSNESS [None]
  - ANXIETY [None]
